FAERS Safety Report 7642019-3 (Version None)
Quarter: 2011Q3

REPORT INFORMATION
  Report Type: 
  Country: None (occurrence: None)
  Receive Date: 20110728
  Receipt Date: 20110725
  Transmission Date: 20111222
  Serious: Yes (Other)
  Sender: FDA-Public Use
  Company Number: US-PFIZER INC-2011119042

PATIENT
  Sex: Female
  Weight: 64.399 kg

DRUGS (9)
  1. MICRO-K [Concomitant]
     Indication: MINERAL SUPPLEMENTATION
     Dosage: UNK
  2. CHANTIX [Suspect]
     Indication: SMOKING CESSATION THERAPY
     Dosage: 0.5 MG, 1X/DAY
     Route: 048
     Dates: start: 20110505, end: 20110609
  3. GEODON [Concomitant]
     Indication: SLEEP DISORDER
     Dosage: UNK
  4. LYRICA [Concomitant]
     Indication: ARTHRITIS
     Dosage: UNK
  5. PRISTIQ [Concomitant]
     Indication: DEPRESSION
     Dosage: UNK
  6. KLONOPIN [Concomitant]
     Indication: SLEEP DISORDER
     Dosage: UNK
  7. ADDERALL 10 [Concomitant]
     Indication: ANXIETY
     Dosage: UNK
  8. CENESTIN [Concomitant]
     Indication: HORMONE REPLACEMENT THERAPY
     Dosage: UNK
  9. LASIX [Concomitant]
     Indication: FLUID RETENTION
     Dosage: UNK

REACTIONS (8)
  - SUICIDAL IDEATION [None]
  - IRRITABILITY [None]
  - SLEEP DISORDER [None]
  - DRUG INEFFECTIVE [None]
  - DEPRESSION [None]
  - ASTHENIA [None]
  - AGITATION [None]
  - ANHEDONIA [None]
